FAERS Safety Report 21353066 (Version 1)
Quarter: 2022Q3

REPORT INFORMATION
  Report Type: Spontaneous
  Country: US (occurrence: US)
  Receive Date: 20220920
  Receipt Date: 20220920
  Transmission Date: 20221027
  Serious: No
  Sender: FDA-Public Use
  Company Number: US-SUN PHARMACEUTICAL INDUSTRIES LTD-2022R1-344084

PATIENT
  Age: 41 Year
  Sex: Female

DRUGS (1)
  1. WINLEVI [Suspect]
     Active Substance: CLASCOTERONE
     Indication: Acne
     Dosage: UNK 1% TWICE A DAY
     Route: 061
     Dates: start: 20220601, end: 20220615

REACTIONS (3)
  - Product physical consistency issue [Unknown]
  - Product quality issue [Unknown]
  - Drug ineffective [Unknown]
